FAERS Safety Report 8772558 (Version 8)
Quarter: 2013Q2

REPORT INFORMATION
  Report Type: Spontaneous
  Country: US (occurrence: US)
  Receive Date: 20120905
  Receipt Date: 20130417
  Transmission Date: 20140414
  Serious: Yes (Hospitalization, Disabling, Other)
  Sender: FDA-Public Use
  Company Number: US-009507513-1205USA00042

PATIENT
  Sex: Female

DRUGS (7)
  1. FOSAMAX [Suspect]
     Indication: OSTEOPOROSIS
     Dosage: 10 MG, QD
     Route: 048
     Dates: start: 19960613, end: 200610
  2. FOSAMAX [Suspect]
     Indication: FOOT FRACTURE
     Dosage: 70 MG, QW
     Route: 048
     Dates: start: 20021203
  3. FOSAMAX [Suspect]
     Indication: OSTEOPOROSIS
     Dosage: UNK
     Route: 048
     Dates: start: 20080407, end: 20100310
  4. FOSAMAX [Suspect]
     Indication: FOOT FRACTURE
  5. OS-CAL + D [Concomitant]
     Indication: OSTEOPOROSIS
  6. ALENDRONATE SODIUM [Suspect]
     Dosage: UNK
     Route: 048
     Dates: start: 20081002
  7. ALENDRONATE SODIUM [Suspect]
     Dosage: 70 MG, UNK
     Route: 048
     Dates: start: 20090702

REACTIONS (28)
  - Open reduction of fracture [Unknown]
  - Stress fracture [Not Recovered/Not Resolved]
  - Femur fracture [Not Recovered/Not Resolved]
  - Anaemia postoperative [Recovering/Resolving]
  - Tachycardia [Recovering/Resolving]
  - Tonsillectomy [Unknown]
  - Appendicectomy [Unknown]
  - Low turnover osteopathy [Not Recovered/Not Resolved]
  - Squamous cell carcinoma [Unknown]
  - Femur fracture [Recovering/Resolving]
  - Hypertension [Unknown]
  - Herpes zoster [Unknown]
  - Monocytosis [Unknown]
  - Exostosis of jaw [Unknown]
  - Haematoma [Recovering/Resolving]
  - Ecchymosis [Unknown]
  - Irritable bowel syndrome [Unknown]
  - Myelodysplastic syndrome [Unknown]
  - Full blood count abnormal [Unknown]
  - Differential white blood cell count abnormal [Unknown]
  - Tachycardia [Unknown]
  - Oral papilloma [Unknown]
  - Hypercalcaemia [Unknown]
  - Neutropenia [Unknown]
  - Back pain [Unknown]
  - Oedema peripheral [Unknown]
  - Gastrooesophageal reflux disease [Unknown]
  - Dyspepsia [Unknown]
